FAERS Safety Report 8978442 (Version 4)
Quarter: 2013Q1

REPORT INFORMATION
  Report Type: Spontaneous
  Country: JP (occurrence: JP)
  Receive Date: 20121221
  Receipt Date: 20130125
  Transmission Date: 20140127
  Serious: Yes (Other)
  Sender: FDA-Public Use
  Company Number: JP-PFIZER INC-2012318982

PATIENT
  Age: 18 Year
  Sex: Male

DRUGS (3)
  1. DALACIN [Suspect]
     Indication: PHARYNGITIS
     Dosage: 2 CAPSULES, 3X/DAY
     Route: 048
     Dates: start: 20121212
  2. MUCOSTA [Concomitant]
     Dosage: 3 DF DAILY
     Route: 048
     Dates: start: 20121212
  3. BIOFERMIN R [Concomitant]
     Dosage: 1 DF, 3X/DAY
     Route: 048
     Dates: start: 20121212

REACTIONS (1)
  - Oesophageal ulcer [Unknown]
